FAERS Safety Report 7382521-5 (Version None)
Quarter: 2011Q1

REPORT INFORMATION
  Report Type: 
  Country: None (occurrence: None)
  Receive Date: 20110329
  Receipt Date: 20110307
  Transmission Date: 20110831
  Serious: Yes (Hospitalization)
  Sender: FDA-Public Use
  Company Number: US-BAYER-201036437NA

PATIENT
  Sex: Female

DRUGS (5)
  1. CLARITIN [Concomitant]
  2. ZOLOFT [Concomitant]
  3. YASMIN [Suspect]
     Indication: PRODUCT USED FOR UNKNOWN INDICATION
     Dosage: UNK
     Route: 048
     Dates: start: 20040120, end: 20060525
  4. ROGAINE [Concomitant]
  5. WELLBUTRIN [Concomitant]

REACTIONS (1)
  - PULMONARY EMBOLISM [None]
